FAERS Safety Report 12907973 (Version 1)
Quarter: 2016Q4

REPORT INFORMATION
  Report Type: Spontaneous
  Country: US (occurrence: US)
  Receive Date: 20161102
  Receipt Date: 20161102
  Transmission Date: 20170207
  Serious: Yes (Disabling)
  Sender: FDA-Public Use
  Company Number: None

PATIENT
  Age: 29 Year
  Sex: Female
  Weight: 78.3 kg

DRUGS (5)
  1. VASCEPA [Suspect]
     Active Substance: ICOSAPENT ETHYL
     Indication: BLOOD TRIGLYCERIDES INCREASED
     Dosage: ?          QUANTITY:2 CAPSULE(S);?
     Route: 048
     Dates: start: 20160813, end: 20161018
  2. IBUPROFEN. [Concomitant]
     Active Substance: IBUPROFEN
  3. VITAMIN B12 [Concomitant]
     Active Substance: CYANOCOBALAMIN
  4. VITAMIN D2 [Concomitant]
     Active Substance: ERGOCALCIFEROL
  5. METAXOLONE [Concomitant]
     Active Substance: METAXALONE

REACTIONS (13)
  - High density lipoprotein decreased [None]
  - Asthenia [None]
  - Swelling [None]
  - Myalgia [None]
  - Meibomian gland dysfunction [None]
  - Toxicity to various agents [None]
  - Pain [None]
  - Bacterial infection [None]
  - Blood glucose increased [None]
  - Diarrhoea [None]
  - Drug ineffective [None]
  - Musculoskeletal stiffness [None]
  - Blood cholesterol increased [None]

NARRATIVE: CASE EVENT DATE: 20161101
